FAERS Safety Report 14951241 (Version 4)
Quarter: 2018Q3

REPORT INFORMATION
  Report Type: Report from Study
  Country: CN (occurrence: CN)
  Receive Date: 20180530
  Receipt Date: 20180816
  Transmission Date: 20181010
  Serious: Yes (Hospitalization)
  Sender: FDA-Public Use
  Company Number: PHHY2015CN125384

PATIENT
  Age: 45 Year
  Sex: Female
  Weight: 50 kg

DRUGS (56)
  1. MYFORTIC [Suspect]
     Active Substance: MYCOPHENOLATE SODIUM
     Dosage: 720 MG, QD
     Route: 065
     Dates: start: 20151020
  2. TACROLIMUS. [Suspect]
     Active Substance: TACROLIMUS
     Dosage: 1 MG, BID
     Route: 065
     Dates: start: 20150912, end: 20150921
  3. PREDNISONE. [Suspect]
     Active Substance: PREDNISONE
     Indication: PROPHYLAXIS AGAINST TRANSPLANT REJECTION
     Dosage: 20 MG, QD
     Route: 065
     Dates: start: 20150901, end: 20151008
  4. METOPROLOL. [Concomitant]
     Active Substance: METOPROLOL
     Indication: ARRHYTHMIA PROPHYLAXIS
     Dosage: 12.5 MG, QD
     Route: 048
     Dates: start: 20150901, end: 20150904
  5. DOPAMINE [Concomitant]
     Active Substance: DOPAMINE\DOPAMINE HYDROCHLORIDE
     Indication: BLOOD PRESSURE MANAGEMENT
     Dosage: 100 MG, UNK
     Route: 042
     Dates: start: 20150829, end: 20150902
  6. FUROSEMIDE. [Concomitant]
     Active Substance: FUROSEMIDE
     Indication: POLYURIA
     Dosage: 100 MG, UNK
     Route: 042
     Dates: start: 20150829, end: 20150902
  7. ERYTHROPOIETIN HUMAN [Concomitant]
     Active Substance: ERYTHROPOIETIN
     Dosage: 1000 IU, QD
     Route: 061
     Dates: start: 20151010, end: 20151015
  8. TACROLIMUS. [Suspect]
     Active Substance: TACROLIMUS
     Dosage: 4 MG, QD
     Route: 065
     Dates: start: 20150906, end: 20150912
  9. ISOSORBIDE MONONITRATE. [Concomitant]
     Active Substance: ISOSORBIDE MONONITRATE
     Indication: ARRHYTHMIA
     Dosage: 30 MG, BID
     Route: 048
     Dates: start: 20150907, end: 20150929
  10. IRON SUCROSE [Concomitant]
     Active Substance: IRON SUCROSE
     Indication: ANAEMIA
  11. SIMULECT [Suspect]
     Active Substance: BASILIXIMAB
     Indication: RENAL TRANSPLANT
     Dosage: 20 MG, QD
     Route: 042
     Dates: start: 20150829, end: 20150829
  12. METOPROLOL. [Concomitant]
     Active Substance: METOPROLOL
     Indication: HYPERTENSION
     Dosage: 25 MG, QD
     Route: 048
     Dates: start: 20150904, end: 20150907
  13. LEVAMLODIPINE BESILATE [Concomitant]
     Active Substance: LEVAMLODIPINE BESYLATE
     Indication: HYPERTENSION
     Dosage: 2.5 MG, BID
     Route: 065
     Dates: start: 20150904, end: 20150908
  14. AMBROXOL [Concomitant]
     Active Substance: AMBROXOL
     Indication: PRODUCTIVE COUGH
     Dosage: 30 MG, BID
     Route: 055
     Dates: start: 20150828, end: 20150904
  15. OMEPRAZOLE. [Concomitant]
     Active Substance: OMEPRAZOLE
     Indication: GASTRITIS PROPHYLAXIS
     Dosage: 40 MG, BID
     Route: 042
     Dates: start: 20150828, end: 20150904
  16. ISOSORBIDE MONONITRATE. [Concomitant]
     Active Substance: ISOSORBIDE MONONITRATE
     Dosage: 30 MG, QD
     Route: 048
     Dates: start: 20150929, end: 20151023
  17. CALTRATE D                         /00944201/ [Concomitant]
     Indication: MINERAL SUPPLEMENTATION
     Dosage: 600 MG, QD
     Route: 048
     Dates: start: 20150910
  18. ALBUMIN HUMAN [Concomitant]
     Active Substance: ALBUMIN HUMAN
     Indication: SUPPLEMENTATION THERAPY
     Dosage: 12500 MG, QD
     Route: 042
     Dates: start: 20150828, end: 20150904
  19. VORICONAZOLE. [Concomitant]
     Active Substance: VORICONAZOLE
     Dosage: 200 MG, QD
     Route: 042
     Dates: start: 20151015, end: 20151023
  20. MYFORTIC [Suspect]
     Active Substance: MYCOPHENOLATE SODIUM
     Indication: RENAL TRANSPLANT
     Dosage: 540 MG, BID
     Route: 048
     Dates: start: 20150904, end: 20150921
  21. MYFORTIC [Suspect]
     Active Substance: MYCOPHENOLATE SODIUM
     Indication: PROPHYLAXIS AGAINST TRANSPLANT REJECTION
     Dosage: 360 MG, BID
     Route: 048
     Dates: start: 20150925, end: 20151002
  22. MYFORTIC [Suspect]
     Active Substance: MYCOPHENOLATE SODIUM
     Indication: IMMUNOSUPPRESSION
     Dosage: 1080 MG, QD
     Route: 065
     Dates: start: 20150904, end: 20150925
  23. MYFORTIC [Suspect]
     Active Substance: MYCOPHENOLATE SODIUM
     Dosage: 1440 MG, QD
     Route: 065
     Dates: start: 20150829, end: 20150904
  24. TACROLIMUS. [Suspect]
     Active Substance: TACROLIMUS
     Dosage: 1 MG, QD
     Route: 065
     Dates: start: 20150921, end: 20151012
  25. IRBESARTAN. [Concomitant]
     Active Substance: IRBESARTAN
     Indication: BLOOD PRESSURE MEASUREMENT
  26. SPIRONOLACTONE. [Concomitant]
     Active Substance: SPIRONOLACTONE
     Indication: POLYURIA
     Dosage: 20 MG, BID
     Route: 048
     Dates: start: 20150902, end: 20150906
  27. ERYTHROPOIETIN HUMAN [Concomitant]
     Active Substance: ERYTHROPOIETIN
     Indication: ANAEMIA
     Dosage: 1000 IU, QD
     Route: 061
     Dates: start: 20150904, end: 20150908
  28. SIMULECT [Suspect]
     Active Substance: BASILIXIMAB
     Indication: PROPHYLAXIS AGAINST TRANSPLANT REJECTION
     Dosage: 20 MG, QD
     Route: 042
     Dates: start: 20150902, end: 20150902
  29. TACROLIMUS. [Suspect]
     Active Substance: TACROLIMUS
     Dosage: 1 MG, QD
     Route: 065
     Dates: start: 20151023
  30. METHYLPREDNISOLONE. [Suspect]
     Active Substance: METHYLPREDNISOLONE
     Dosage: 500 MG, QD
     Route: 065
     Dates: start: 20150830, end: 20150901
  31. VORICONAZOLE. [Concomitant]
     Active Substance: VORICONAZOLE
     Indication: ELECTROLYTE SUBSTITUTION THERAPY
     Dosage: 200 MG, BID
     Dates: start: 20151009, end: 20151015
  32. IRON SUCROSE [Concomitant]
     Active Substance: IRON SUCROSE
     Indication: MINERAL SUPPLEMENTATION
     Dosage: 100 MG, QD
     Route: 042
     Dates: start: 20150904, end: 20150908
  33. VITAMIN C [Concomitant]
     Active Substance: ASCORBIC ACID
     Indication: NUTRITIONAL SUPPLEMENTATION
     Dosage: 2 G, QD
     Route: 042
     Dates: start: 20150828, end: 20150905
  34. SIMULECT [Suspect]
     Active Substance: BASILIXIMAB
     Indication: IMMUNOSUPPRESSION
  35. TACROLIMUS. [Suspect]
     Active Substance: TACROLIMUS
     Dosage: 0.5 MG, BID
     Route: 065
     Dates: start: 20150921, end: 20151012
  36. TACROLIMUS. [Suspect]
     Active Substance: TACROLIMUS
     Dosage: 0.5 MG, QD
     Route: 065
     Dates: start: 20151012, end: 20151023
  37. METOPROLOL. [Concomitant]
     Active Substance: METOPROLOL
     Dosage: 25 MG, BID
     Route: 048
     Dates: start: 20150907, end: 20150915
  38. METOPROLOL. [Concomitant]
     Active Substance: METOPROLOL
     Dosage: 47.5 MG, BID
     Route: 048
     Dates: start: 20150919, end: 20151014
  39. IRBESARTAN. [Concomitant]
     Active Substance: IRBESARTAN
     Indication: HYPERTENSION
     Dosage: 150 MG, QD
     Route: 048
     Dates: start: 20150904, end: 20150908
  40. HYDROCHLOROTHIAZIDE. [Concomitant]
     Active Substance: HYDROCHLOROTHIAZIDE
     Indication: HYPERTENSION
     Dosage: 150 MG, QD
     Route: 048
     Dates: start: 20150904, end: 20150908
  41. HYDROCHLOROTHIAZIDE. [Concomitant]
     Active Substance: HYDROCHLOROTHIAZIDE
     Indication: BLOOD PRESSURE MANAGEMENT
  42. AMINO ACID [Concomitant]
     Active Substance: AMINO ACIDS
     Indication: SUPPLEMENTATION THERAPY
     Dosage: 500 ML, QD
     Route: 042
     Dates: start: 20150828, end: 20150904
  43. RABEPRAZOLE [Concomitant]
     Active Substance: RABEPRAZOLE
     Indication: GASTRITIS
     Dosage: 20 MG, QD
     Route: 048
     Dates: start: 20150904, end: 20150921
  44. TACROLIMUS. [Suspect]
     Active Substance: TACROLIMUS
     Indication: IMMUNOSUPPRESSANT DRUG THERAPY
     Dosage: 2 MG, BID
     Route: 065
     Dates: start: 20150906, end: 20150912
  45. TACROLIMUS. [Suspect]
     Active Substance: TACROLIMUS
     Dosage: 0.5 MG, QD
     Route: 065
     Dates: start: 20151012, end: 20151023
  46. METOPROLOL. [Concomitant]
     Active Substance: METOPROLOL
     Dosage: 47.5 MG, BID
     Route: 048
     Dates: start: 20150915, end: 20150919
  47. DILTIAZEM HYDROCHLORIDE. [Concomitant]
     Active Substance: DILTIAZEM HYDROCHLORIDE
     Indication: BLOOD PRESSURE MANAGEMENT
     Dosage: 30 MG, BID
     Route: 048
     Dates: start: 20150902
  48. VITAMIN B6 [Concomitant]
     Active Substance: PYRIDOXINE HYDROCHLORIDE
     Indication: NUTRITIONAL SUPPLEMENTATION
     Dosage: 0.2 G, QD
     Route: 042
     Dates: start: 20150828, end: 20150904
  49. MYFORTIC [Suspect]
     Active Substance: MYCOPHENOLATE SODIUM
     Dosage: 720 MG, QD
     Route: 065
     Dates: start: 20150925, end: 20151002
  50. TACROLIMUS. [Suspect]
     Active Substance: TACROLIMUS
     Indication: PROPHYLAXIS AGAINST TRANSPLANT REJECTION
     Dosage: 1 MG, BID
     Route: 065
     Dates: start: 20150902, end: 20150906
  51. TACROLIMUS. [Suspect]
     Active Substance: TACROLIMUS
     Dosage: 2 MG, QD
     Route: 065
     Dates: start: 20150902, end: 20150906
  52. PREDNISONE. [Suspect]
     Active Substance: PREDNISONE
     Indication: IMMUNOSUPPRESSION
     Dosage: 15 MG, QD
     Route: 065
     Dates: start: 20151008
  53. METHYLPREDNISOLONE. [Suspect]
     Active Substance: METHYLPREDNISOLONE
     Indication: PRODUCT USED FOR UNKNOWN INDICATION
     Dosage: 500 MG, QD
     Route: 065
     Dates: start: 20150828, end: 20150828
  54. CALCITRIOL. [Concomitant]
     Active Substance: CALCITRIOL
     Indication: MINERAL SUPPLEMENTATION
     Dosage: 0.25 UG, QD
     Route: 048
     Dates: start: 20150910, end: 20151023
  55. ORYZANOL [Concomitant]
     Active Substance: GAMMA ORYZANOL
     Indication: ANXIETY
     Dosage: 20 MG, TID
     Route: 048
     Dates: start: 20150927, end: 20151002
  56. SODIUM BICARBONATE. [Concomitant]
     Active Substance: SODIUM BICARBONATE
     Indication: GASTRITIS
     Dosage: 1000 MG, TID
     Route: 048
     Dates: start: 20150918, end: 20151023

REACTIONS (12)
  - Blood urea increased [Unknown]
  - Blood urine present [Unknown]
  - Glomerular filtration rate increased [Unknown]
  - White blood cell count increased [Unknown]
  - Escherichia urinary tract infection [Recovered/Resolved]
  - Urinary tract infection [Recovered/Resolved]
  - Protein urine present [Unknown]
  - Enteritis infectious [Recovering/Resolving]
  - Haemoglobin decreased [Unknown]
  - Diarrhoea [Recovered/Resolved]
  - Neutrophil count increased [Unknown]
  - Lymphocyte count decreased [Unknown]

NARRATIVE: CASE EVENT DATE: 20150911
